FAERS Safety Report 24984056 (Version 1)
Quarter: 2025Q1

REPORT INFORMATION
  Report Type: Spontaneous
  Country: CA (occurrence: CA)
  Receive Date: 20250219
  Receipt Date: 20250219
  Transmission Date: 20250408
  Serious: Yes (Other)
  Sender: CSL BEHRING
  Company Number: CA-BEH-2025195853

PATIENT

DRUGS (7)
  1. HUMAN IMMUNOGLOBULIN G [Interacting]
     Active Substance: HUMAN IMMUNOGLOBULIN G
     Indication: Infertility
     Dosage: 12 G, QW(1 EVERY 1 WEEK)
     Route: 058
  2. HUMAN IMMUNOGLOBULIN G [Interacting]
     Active Substance: HUMAN IMMUNOGLOBULIN G
     Indication: In vitro fertilisation
     Route: 065
  3. HUMAN IMMUNOGLOBULIN G [Interacting]
     Active Substance: HUMAN IMMUNOGLOBULIN G
     Indication: Off label use
     Route: 065
  4. HUMAN IMMUNOGLOBULIN G [Interacting]
     Active Substance: HUMAN IMMUNOGLOBULIN G
     Route: 065
  5. FRAGMIN [Interacting]
     Active Substance: DALTEPARIN SODIUM
     Indication: In vitro fertilisation
     Route: 065
  6. FRAGMIN [Interacting]
     Active Substance: DALTEPARIN SODIUM
     Route: 065
  7. ASPIRIN [Concomitant]
     Active Substance: ASPIRIN
     Route: 065

REACTIONS (15)
  - Vasculitis [Unknown]
  - Vascular pain [Unknown]
  - Back pain [Unknown]
  - Disturbance in attention [Unknown]
  - Dizziness [Unknown]
  - Drug interaction [Unknown]
  - Fatigue [Unknown]
  - Headache [Unknown]
  - Immune-mediated adverse reaction [Unknown]
  - Irritability [Unknown]
  - Mental disorder [Unknown]
  - Neuralgia [Unknown]
  - Muscle twitching [Unknown]
  - Off label use [Unknown]
  - Off label use [Unknown]
